FAERS Safety Report 18886193 (Version 1)
Quarter: 2021Q1

REPORT INFORMATION
  Report Type: Spontaneous
  Country: US (occurrence: US)
  Receive Date: 20210212
  Receipt Date: 20210212
  Transmission Date: 20210420
  Serious: Yes (Hospitalization, Other)
  Sender: FDA-Public Use
  Company Number: US-PFIZER INC-2021144929

PATIENT
  Sex: Male

DRUGS (3)
  1. LORBRENA [Suspect]
     Active Substance: LORLATINIB
     Dosage: UNK MG
     Dates: start: 202004
  2. LORBRENA [Suspect]
     Active Substance: LORLATINIB
     Dosage: 100 MG
  3. TAXOL [Suspect]
     Active Substance: PACLITAXEL
     Dosage: UNK
     Dates: start: 20210101

REACTIONS (5)
  - Cognitive disorder [Unknown]
  - Neoplasm progression [Unknown]
  - Confusional state [Unknown]
  - Feeling abnormal [Unknown]
  - Delirium [Unknown]
